FAERS Safety Report 23921975 (Version 5)
Quarter: 2024Q4

REPORT INFORMATION
  Report Type: Report from Study
  Country: JP (occurrence: JP)
  Receive Date: 20240531
  Receipt Date: 20241127
  Transmission Date: 20250114
  Serious: Yes (Death, Life-Threatening, Other)
  Sender: SANOFI AVENTIS
  Company Number: JP-SAKK-2024SA161170AA

PATIENT
  Age: 75 Year
  Sex: Male
  Weight: 70.7 kg

DRUGS (22)
  1. CAPLACIZUMAB [Suspect]
     Active Substance: CAPLACIZUMAB
     Indication: Thrombotic thrombocytopenic purpura
     Dosage: 10 MG, 1X
     Route: 042
     Dates: start: 20230919, end: 20230919
  2. CAPLACIZUMAB [Suspect]
     Active Substance: CAPLACIZUMAB
     Indication: Thrombotic thrombocytopenic purpura
     Dosage: 10 MG, 1X
     Route: 042
     Dates: start: 20230919, end: 20230919
  3. CAPLACIZUMAB [Suspect]
     Active Substance: CAPLACIZUMAB
     Indication: Thrombotic thrombocytopenic purpura
     Dosage: 10 MG, 1X
     Route: 042
     Dates: start: 20230919, end: 20230919
  4. CAPLACIZUMAB [Suspect]
     Active Substance: CAPLACIZUMAB
     Indication: Thrombotic thrombocytopenic purpura
     Dosage: 10 MG, 1X
     Route: 042
     Dates: start: 20230919, end: 20230919
  5. CAPLACIZUMAB [Suspect]
     Active Substance: CAPLACIZUMAB
     Dosage: 10 MG, 1X
     Route: 058
     Dates: start: 20230919, end: 20230919
  6. CAPLACIZUMAB [Suspect]
     Active Substance: CAPLACIZUMAB
     Dosage: 10 MG, 1X
     Route: 058
     Dates: start: 20230919, end: 20230919
  7. CAPLACIZUMAB [Suspect]
     Active Substance: CAPLACIZUMAB
     Dosage: 10 MG, 1X
     Route: 058
     Dates: start: 20230919, end: 20230919
  8. CAPLACIZUMAB [Suspect]
     Active Substance: CAPLACIZUMAB
     Dosage: 10 MG, 1X
     Route: 058
     Dates: start: 20230919, end: 20230919
  9. CAPLACIZUMAB [Suspect]
     Active Substance: CAPLACIZUMAB
     Dosage: 10 MG, QD
     Route: 058
     Dates: start: 20230920, end: 20230929
  10. CAPLACIZUMAB [Suspect]
     Active Substance: CAPLACIZUMAB
     Dosage: 10 MG, QD
     Route: 058
     Dates: start: 20230920, end: 20230929
  11. CAPLACIZUMAB [Suspect]
     Active Substance: CAPLACIZUMAB
     Dosage: 10 MG, QD
     Route: 058
     Dates: start: 20230920, end: 20230929
  12. CAPLACIZUMAB [Suspect]
     Active Substance: CAPLACIZUMAB
     Dosage: 10 MG, QD
     Route: 058
     Dates: start: 20230920, end: 20230929
  13. PREDNISOLONE [Suspect]
     Active Substance: PREDNISOLONE
     Indication: Product used for unknown indication
     Dosage: UNK
     Route: 065
  14. RITUXIMAB [Suspect]
     Active Substance: RITUXIMAB
     Indication: Product used for unknown indication
     Dosage: UNK
     Route: 065
  15. SOLU-MEDROL [Concomitant]
     Active Substance: METHYLPREDNISOLONE SODIUM SUCCINATE
     Indication: Thrombotic thrombocytopenic purpura
     Dosage: 1000 MG, QD
     Route: 065
     Dates: start: 20230918, end: 20230920
  16. SOLU-MEDROL [Concomitant]
     Active Substance: METHYLPREDNISOLONE SODIUM SUCCINATE
     Dosage: 500 MG, QD
     Route: 065
     Dates: start: 20230921, end: 20230922
  17. SOLU-MEDROL [Concomitant]
     Active Substance: METHYLPREDNISOLONE SODIUM SUCCINATE
     Dosage: 250 MG, QD
     Route: 065
     Dates: start: 20230923, end: 20230924
  18. SOLU-MEDROL [Concomitant]
     Active Substance: METHYLPREDNISOLONE SODIUM SUCCINATE
     Dosage: 125 MG, QD
     Route: 065
     Dates: start: 20230925, end: 20230926
  19. SOLU-MEDROL [Concomitant]
     Active Substance: METHYLPREDNISOLONE SODIUM SUCCINATE
     Dosage: 70 MG, QD
     Route: 065
     Dates: start: 20230927, end: 20231005
  20. SOLU-MEDROL [Concomitant]
     Active Substance: METHYLPREDNISOLONE SODIUM SUCCINATE
     Dosage: 500 MG, QD
     Route: 065
     Dates: start: 20231006, end: 20231007
  21. SOLU-MEDROL [Concomitant]
     Active Substance: METHYLPREDNISOLONE SODIUM SUCCINATE
     Dosage: 250 MG, QD
     Route: 065
     Dates: start: 20231008, end: 20231009
  22. SOLU-MEDROL [Concomitant]
     Active Substance: METHYLPREDNISOLONE SODIUM SUCCINATE
     Dosage: 125 MG, QD
     Route: 065
     Dates: start: 20231010, end: 20231019

REACTIONS (2)
  - Pneumonia bacterial [Fatal]
  - Cerebral infarction [Not Recovered/Not Resolved]

NARRATIVE: CASE EVENT DATE: 20230929
